FAERS Safety Report 4843831-6 (Version None)
Quarter: 2005Q4

REPORT INFORMATION
  Report Type: 
  Country: None (occurrence: None)
  Receive Date: 20051202
  Receipt Date: 20051128
  Transmission Date: 20060501
  Serious: Yes (Other)
  Sender: FDA-Public Use
  Company Number: GB-GLAXOSMITHKLINE-B0401986A

PATIENT
  Age: 35 Year
  Sex: Female
  Weight: 55 kg

DRUGS (4)
  1. SALBUTAMOL [Suspect]
     Dosage: 2U PER DAY
     Route: 048
     Dates: start: 20051025, end: 20051026
  2. ORAMORPH SR [Concomitant]
     Indication: PAIN
     Route: 048
     Dates: start: 20051001
  3. ENOXAPARIN [Concomitant]
     Indication: THROMBOSIS
     Dosage: 80MG PER DAY
     Route: 058
     Dates: start: 20051001
  4. CO-CODAMOL [Concomitant]
     Indication: PAIN
     Route: 048
     Dates: start: 20050101

REACTIONS (4)
  - AGITATION [None]
  - MALAISE [None]
  - TACHYCARDIA [None]
  - VOMITING [None]
